FAERS Safety Report 8428910-9 (Version None)
Quarter: 2012Q2

REPORT INFORMATION
  Report Type: 
  Country: None (occurrence: None)
  Receive Date: 20120612
  Receipt Date: 20120608
  Transmission Date: 20120825
  Serious: No
  Sender: FDA-Public Use
  Company Number: US-BAYER-2012-057551

PATIENT
  Age: 47 Year
  Sex: Male

DRUGS (13)
  1. POLYETHYLENE GLYCOL [Concomitant]
  2. STAXYN [Suspect]
     Indication: ERECTILE DYSFUNCTION
     Dosage: 10 MG, UNK
     Route: 048
     Dates: start: 20120521, end: 20120521
  3. CYMBALTA [Concomitant]
  4. ADDERALL 5 [Concomitant]
  5. BACLOFEN [Concomitant]
  6. GABAPENTIN [Concomitant]
  7. WELLBUTRIN [Concomitant]
  8. XANAX [Concomitant]
     Route: 048
  9. AMPYRA [Concomitant]
  10. VICODIN [Concomitant]
  11. TIPIFARNIB [Concomitant]
  12. CIALIS [Concomitant]
  13. B12-VITAMIIN [Concomitant]

REACTIONS (1)
  - ERECTILE DYSFUNCTION [None]
